FAERS Safety Report 20279819 (Version 1)
Quarter: 2021Q4

REPORT INFORMATION
  Report Type: Spontaneous
  Country: US (occurrence: None)
  Receive Date: 20211231
  Receipt Date: 20211231
  Transmission Date: 20220303
  Serious: Yes (Death)
  Sender: FDA-Public Use
  Company Number: None

PATIENT
  Age: 83 Year
  Sex: Female

DRUGS (15)
  1. REVLIMID [Suspect]
     Active Substance: LENALIDOMIDE
     Indication: Plasma cell myeloma
     Dosage: FREQUENCY : DAILY;?
     Route: 048
     Dates: start: 20141219, end: 20211206
  2. DEXAMETHASONE [Concomitant]
     Active Substance: DEXAMETHASONE
  3. METOPROLOL TARTRATE [Concomitant]
  4. NIACIN [Concomitant]
  5. FAMOTIDINE [Concomitant]
  6. ASPIRIN [Concomitant]
  7. OXYCODONE-ACETAMINOPHEN [Concomitant]
  8. ENOXAPARIN [Concomitant]
  9. THIAMINE [Concomitant]
  10. PRAMIPEXOLE [Concomitant]
  11. MVI [Concomitant]
  12. TIOTROPIUM [Concomitant]
     Active Substance: TIOTROPIUM
  13. ALBUTEROL [Concomitant]
  14. FLUTICASONE-SALMETEROL [Concomitant]
  15. LACTOBACILLUS [Concomitant]

REACTIONS (4)
  - Syncope [None]
  - Osteomyelitis [None]
  - Ischaemic skin ulcer [None]
  - Gangrene [None]

NARRATIVE: CASE EVENT DATE: 20211206
